FAERS Safety Report 4309718-2 (Version None)
Quarter: 2004Q1

REPORT INFORMATION
  Report Type: 
  Country: None (occurrence: None)
  Receive Date: 20040301
  Receipt Date: 20040215
  Transmission Date: 20041129
  Serious: Yes (Life-Threatening)
  Sender: FDA-Public Use
  Company Number: CN-SHR-04-021458

PATIENT
  Age: 47 Year
  Sex: Male
  Weight: 65 kg

DRUGS (1)
  1. ULTRAVIST 300 [Suspect]
     Indication: COMPUTERISED TOMOGRAM
     Dosage: 75 M1, UNK, INTRAVENOUS
     Route: 042
     Dates: start: 20040215

REACTIONS (6)
  - CHILLS [None]
  - FLUSHING [None]
  - LARYNGEAL OEDEMA [None]
  - POST PROCEDURAL COMPLICATION [None]
  - PYREXIA [None]
  - SHOCK [None]
